FAERS Safety Report 14266709 (Version 9)
Quarter: 2018Q2

REPORT INFORMATION
  Report Type: Report from Study
  Country: KR (occurrence: KR)
  Receive Date: 20171211
  Receipt Date: 20180512
  Transmission Date: 20180711
  Serious: Yes (Hospitalization)
  Sender: FDA-Public Use
  Company Number: KR-ROCHE-2025884

PATIENT
  Age: 57 Year
  Sex: Male
  Weight: 66 kg

DRUGS (9)
  1. 5-FLUOROURACIL [Suspect]
     Active Substance: FLUOROURACIL
     Indication: COLORECTAL CANCER METASTATIC
     Dosage: DATE OF MOST RECENT DOSE 4248 MG OF STUDY DRUG PRIOR TO SAE ONSET: 10/OCT/2017
     Route: 042
     Dates: start: 20170704
  2. SUSPEN ER [Concomitant]
     Route: 065
     Dates: start: 20171010, end: 20171011
  3. OXALIPLATIN. [Suspect]
     Active Substance: OXALIPLATIN
     Indication: COLORECTAL CANCER METASTATIC
     Dosage: DATE OF MOST RECENT DOSE 150.5 MG OF STUDY DRUG PRIOR TO AE ONSET: 10/OCT/2017
     Route: 042
     Dates: start: 20170704
  4. BEVACIZUMAB. [Suspect]
     Active Substance: BEVACIZUMAB
     Indication: COLORECTAL CANCER METASTATIC
     Dosage: DATE OF MOST RECENT DOSE OF BEVACIZUMAB (325 MG) PRIOR TO SAE ONSET: 10/OCT/2017
     Route: 042
     Dates: start: 20170704
  5. FOLINIC ACID [Suspect]
     Active Substance: LEUCOVORIN
     Indication: COLORECTAL CANCER METASTATIC
     Dosage: DATE OF MOST RECENT DOSE 708 MG STUDY DRUG PRIOR TO AE ONSET: 10/OCT/2017
     Route: 042
     Dates: start: 20170704
  6. SOLONDO [Concomitant]
     Active Substance: PREDNISOLONE
     Route: 065
     Dates: start: 20171020, end: 20171022
  7. SUSPEN ER [Concomitant]
     Indication: PYREXIA
     Route: 065
     Dates: start: 20170719, end: 20170719
  8. 5-FLUOROURACIL [Suspect]
     Active Substance: FLUOROURACIL
     Dosage: DATE OF MOST RECENT DOSE 708 MG OF STUDY DRUG PRIOR TO AE ONSET: 10/OCT/2017
     Route: 040
  9. CELEBREX [Concomitant]
     Active Substance: CELECOXIB
     Route: 065
     Dates: start: 20170609

REACTIONS (1)
  - Rhabdomyolysis [Recovered/Resolved]

NARRATIVE: CASE EVENT DATE: 20171107
